FAERS Safety Report 7786574-1 (Version None)
Quarter: 2011Q3

REPORT INFORMATION
  Report Type: 
  Country: None (occurrence: None)
  Receive Date: 20110929
  Receipt Date: 20110922
  Transmission Date: 20111222
  Serious: Yes (Hospitalization)
  Sender: FDA-Public Use
  Company Number: FR-UCBSA-040613

PATIENT
  Sex: Male
  Weight: 57 kg

DRUGS (8)
  1. VIMPAT [Suspect]
     Dosage: DAILY DOSE: 400 MG
     Route: 048
     Dates: start: 20110501, end: 20110601
  2. ZONEGRAN [Concomitant]
     Dates: end: 20110501
  3. DEPAKENE [Concomitant]
     Indication: PARTIAL SEIZURES
     Route: 048
  4. URBANYL [Concomitant]
     Indication: PARTIAL SEIZURES
     Route: 048
  5. VIMPAT [Suspect]
     Indication: PARTIAL SEIZURES
     Route: 048
     Dates: start: 20110601, end: 20110922
  6. LAMICTAL [Concomitant]
     Indication: PARTIAL SEIZURES
     Route: 048
  7. KEPPRA [Concomitant]
     Indication: PARTIAL SEIZURES
     Route: 048
  8. ZONEGRAN [Concomitant]
     Dosage: REDUCED DOSE
     Dates: start: 20110512, end: 20110501

REACTIONS (4)
  - WEIGHT DECREASED [None]
  - VOMITING [None]
  - CONVULSION [None]
  - DECREASED APPETITE [None]
